FAERS Safety Report 8989186 (Version 1)
Quarter: 2012Q4

REPORT INFORMATION
  Report Type: Spontaneous
  Country: GB (occurrence: None)
  Receive Date: 20121219
  Receipt Date: 20121219
  Transmission Date: 20130627
  Serious: Yes (Other)
  Sender: FDA-Public Use
  Company Number: AUR-APL-2012-05299

PATIENT
  Age: 48 Year
  Sex: Male
  Weight: 73.18 kg

DRUGS (5)
  1. AMOXICILLIN\CLAVULANATE POTASSIUM [Suspect]
     Dates: start: 20121116
  2. AQUEOUS CREAM [Concomitant]
  3. LEVOTHYROXINE(LEVOTHYROXINE) [Concomitant]
  4. LIQUID PARAFFIN(PARAFFIN, LIQUID) [Concomitant]
  5. TRIMOVATE(TRIMOVATE /00456501/) [Concomitant]

REACTIONS (1)
  - Rash pruritic [None]
